FAERS Safety Report 12841828 (Version 1)
Quarter: 2016Q4

REPORT INFORMATION
  Report Type: Spontaneous
  Country: NO (occurrence: NO)
  Receive Date: 20161012
  Receipt Date: 20161012
  Transmission Date: 20170207
  Serious: Yes (Hospitalization)
  Sender: FDA-Public Use
  Company Number: NO-009507513-1610NOR003667

PATIENT
  Sex: Female

DRUGS (3)
  1. AERIUS [Suspect]
     Active Substance: DESLORATADINE
     Indication: SEASONAL ALLERGY
     Dosage: 5 MG, QD
     Route: 048
     Dates: start: 200102, end: 201609
  2. PARACET [Concomitant]
     Active Substance: ACETAMINOPHEN
     Indication: DYSMENORRHOEA
     Dosage: UNK, PRN
  3. IBUX [Concomitant]
     Active Substance: IBUPROFEN
     Indication: DYSMENORRHOEA
     Dosage: UNK, PRN

REACTIONS (14)
  - Abdominal discomfort [Unknown]
  - Hypoacusis [Unknown]
  - Heart rate increased [Recovered/Resolved]
  - Diarrhoea [Recovered/Resolved]
  - Muscle spasms [Unknown]
  - Tinnitus [Unknown]
  - Heart rate irregular [Recovered/Resolved]
  - Dizziness [Recovered/Resolved]
  - Somnolence [Unknown]
  - Nausea [Unknown]
  - Restlessness [Unknown]
  - Abdominal pain [Recovered/Resolved]
  - Insomnia [Unknown]
  - Syncope [Unknown]

NARRATIVE: CASE EVENT DATE: 201608
